FAERS Safety Report 23189832 (Version 2)
Quarter: 2023Q4

REPORT INFORMATION
  Report Type: Spontaneous
  Country: US (occurrence: US)
  Receive Date: 20231116
  Receipt Date: 20231229
  Transmission Date: 20240109
  Serious: No
  Sender: FDA-Public Use
  Company Number: US-BIOGEN-2023BI01235825

PATIENT
  Sex: Female

DRUGS (12)
  1. AVONEX PEN [Suspect]
     Active Substance: INTERFERON BETA-1A
     Indication: Multiple sclerosis
     Route: 050
     Dates: start: 20220817
  2. AVONEX PEN [Suspect]
     Active Substance: INTERFERON BETA-1A
  3. AVONEX PEN [Suspect]
     Active Substance: INTERFERON BETA-1A
  4. AVONEX PEN [Suspect]
     Active Substance: INTERFERON BETA-1A
  5. DULOXETINE HYDROCHLORIDE [Concomitant]
     Active Substance: DULOXETINE HYDROCHLORIDE
     Route: 050
  6. ASPIRIN [Concomitant]
     Active Substance: ASPIRIN
     Route: 050
  7. ELETRIPTAN HYDROBROMIDE [Concomitant]
     Active Substance: ELETRIPTAN HYDROBROMIDE
     Route: 050
  8. INDOMETHACIN [Concomitant]
     Active Substance: INDOMETHACIN
     Route: 050
  9. ATIVAN [Concomitant]
     Active Substance: LORAZEPAM
     Route: 050
  10. MAGNESIUM [Concomitant]
     Active Substance: MAGNESIUM
     Route: 050
  11. MINERALS\VITAMINS [Concomitant]
     Active Substance: MINERALS\VITAMINS
     Route: 050
  12. KEPPRA [Concomitant]
     Active Substance: LEVETIRACETAM
     Route: 050

REACTIONS (7)
  - Muscle strain [Unknown]
  - Feeling cold [Unknown]
  - Tremor [Unknown]
  - Injection site injury [Unknown]
  - Injection site bruising [Unknown]
  - Hepatic enzyme increased [Unknown]
  - Injection site haemorrhage [Unknown]
